FAERS Safety Report 7748171-3 (Version None)
Quarter: 2011Q3

REPORT INFORMATION
  Report Type: 
  Country: None (occurrence: None)
  Receive Date: 20110913
  Receipt Date: 20110909
  Transmission Date: 20111222
  Serious: Yes (Hospitalization)
  Sender: FDA-Public Use
  Company Number: PL-ABBOTT-11P-129-0852819-00

PATIENT
  Sex: Female
  Weight: 53 kg

DRUGS (1)
  1. HUMIRA [Suspect]
     Indication: RHEUMATOID ARTHRITIS
     Route: 058
     Dates: start: 20100927, end: 20110621

REACTIONS (7)
  - VOMITING [None]
  - PNEUMONIA KLEBSIELLA [None]
  - DIARRHOEA [None]
  - DEHYDRATION [None]
  - WEIGHT DECREASED [None]
  - MALABSORPTION [None]
  - CYTOMEGALOVIRUS INFECTION [None]
